FAERS Safety Report 9526057 (Version 7)
Quarter: 2013Q4

REPORT INFORMATION
  Report Type: Report from Study
  Country: TR (occurrence: TR)
  Receive Date: 20130916
  Receipt Date: 20131202
  Transmission Date: 20140711
  Serious: Yes (Hospitalization, Other)
  Sender: FDA-Public Use
  Company Number: TR-ROCHE-1261669

PATIENT
  Age: 67 Year
  Sex: Female

DRUGS (2)
  1. XELODA [Suspect]
     Indication: PANCREATIC CARCINOMA
     Route: 048
     Dates: start: 20130730
  2. AUGMENTIN [Concomitant]
     Dosage: 2X1 ORAL
     Route: 048
     Dates: start: 20131017

REACTIONS (12)
  - Cheilitis [Recovered/Resolved]
  - C-reactive protein increased [Recovered/Resolved]
  - Occult blood [Recovered/Resolved]
  - Body temperature increased [Recovered/Resolved]
  - Diarrhoea [Recovered/Resolved]
  - Oedema [Recovering/Resolving]
  - Blood albumin decreased [Recovering/Resolving]
  - Pyrexia [Recovered/Resolved]
  - Volume blood decreased [Unknown]
  - Weight decreased [Not Recovered/Not Resolved]
  - Oropharyngeal pain [Recovered/Resolved]
  - Dyspnoea [Recovered/Resolved]
